FAERS Safety Report 12598611 (Version 1)
Quarter: 2016Q3

REPORT INFORMATION
  Report Type: Spontaneous
  Country: US (occurrence: None)
  Receive Date: 20160726
  Receipt Date: 20160726
  Transmission Date: 20161109
  Serious: No
  Sender: FDA-Public Use
  Company Number: None

PATIENT
  Age: 45 Year
  Sex: Male

DRUGS (5)
  1. MEKINIST [Suspect]
     Active Substance: TRAMETINIB DIMETHYL SULFOXIDE
     Indication: METASTASES TO CENTRAL NERVOUS SYSTEM
     Route: 048
     Dates: start: 201605
  2. HYDROCO/APAP [Concomitant]
     Active Substance: ACETAMINOPHEN\HYDROCODONE
  3. ALPRAZOLAM. [Concomitant]
     Active Substance: ALPRAZOLAM
  4. LEVETIRACETA [Concomitant]
  5. FENTANYL. [Concomitant]
     Active Substance: FENTANYL

REACTIONS (5)
  - Pyrexia [None]
  - Nausea [None]
  - Muscle spasms [None]
  - Dehydration [None]
  - Myocardial infarction [None]

NARRATIVE: CASE EVENT DATE: 2016
